FAERS Safety Report 9112921 (Version 1)
Quarter: 2013Q1

REPORT INFORMATION
  Report Type: Spontaneous
  Country: US (occurrence: US)
  Receive Date: 20130211
  Receipt Date: 20130211
  Transmission Date: 20140127
  Serious: Yes (Other)
  Sender: FDA-Public Use
  Company Number: US-PFIZER INC-2013055335

PATIENT
  Sex: Female
  Weight: 51.7 kg

DRUGS (5)
  1. LYRICA [Suspect]
     Indication: HERPES ZOSTER
     Dosage: 300 MG, UNK
     Route: 048
     Dates: start: 2008
  2. LYRICA [Suspect]
     Indication: POST HERPETIC NEURALGIA
  3. LYRICA [Suspect]
     Indication: PAIN
  4. AMITRIPTYLINE [Concomitant]
     Indication: BLOOD PRESSURE ABNORMAL
     Dosage: 10 MG/DAY
  5. METOPROLOL [Concomitant]
     Indication: BLOOD PRESSURE ABNORMAL
     Dosage: 15 MG, 2X/DAY
     Dates: start: 2005

REACTIONS (2)
  - Hearing impaired [Not Recovered/Not Resolved]
  - Hearing aid user [Not Recovered/Not Resolved]
